FAERS Safety Report 5604120-5 (Version None)
Quarter: 2008Q1

REPORT INFORMATION
  Report Type: 
  Country: None (occurrence: None)
  Receive Date: 20080128
  Receipt Date: 20080118
  Transmission Date: 20080703
  Serious: Yes (Other)
  Sender: FDA-Public Use
  Company Number: PHNU2008DE00676

PATIENT
  Sex: Female

DRUGS (2)
  1. DIOVAN [Suspect]
     Indication: HYPERTENSION
     Dosage: 80 MG/DAY
     Route: 048
     Dates: start: 20070801
  2. GODAMED [Concomitant]
     Dosage: 100 MG, QD
     Route: 065

REACTIONS (7)
  - ARTHRALGIA [None]
  - ASTHENIA [None]
  - CONDITION AGGRAVATED [None]
  - MYALGIA [None]
  - SOMNOLENCE [None]
  - TACHYCARDIA [None]
  - VISUAL DISTURBANCE [None]
